FAERS Safety Report 7315524-7 (Version None)
Quarter: 2011Q1

REPORT INFORMATION
  Report Type: 
  Country: None (occurrence: None)
  Receive Date: 20110201
  Receipt Date: 20110201
  Transmission Date: 20110831
  Serious: Yes (Hospitalization)
  Sender: FDA-Public Use
  Company Number: None

PATIENT
  Age: 63 Year
  Sex: Female
  Weight: 63.5036 kg

DRUGS (21)
  1. GABAPENTIN [Concomitant]
  2. LEVOTHYROXINE [Concomitant]
  3. PEPCID [Concomitant]
  4. PERCOCET [Concomitant]
  5. LEVAQUIN [Suspect]
     Indication: INFECTION
  6. PRAVACHOL [Concomitant]
  7. ZETIA [Concomitant]
  8. MODAFINIL [Concomitant]
  9. ARICEPT [Concomitant]
  10. FERROUS SULFATE TAB [Concomitant]
  11. MIRALAX [Concomitant]
  12. LANTUS [Concomitant]
  13. FOLIC ACID [Concomitant]
  14. POTASSIUM CHLORIDE [Concomitant]
  15. SUDRIN [Concomitant]
  16. AMITRIPTYLINE [Concomitant]
  17. LAMICTAL [Concomitant]
  18. TOPIRAMATE [Concomitant]
  19. VIT D [Concomitant]
  20. EFFEXOR XR [Concomitant]
  21. NORVASC [Concomitant]

REACTIONS (3)
  - RASH PRURITIC [None]
  - DIARRHOEA [None]
  - MUSCLE TIGHTNESS [None]
